FAERS Safety Report 6929240-4 (Version None)
Quarter: 2010Q3

REPORT INFORMATION
  Report Type: 
  Country: None (occurrence: None)
  Receive Date: 20100813
  Receipt Date: 20100729
  Transmission Date: 20110219
  Serious: Yes (Other)
  Sender: FDA-Public Use
  Company Number: 7012295

PATIENT
  Age: 37 Year
  Sex: Male

DRUGS (4)
  1. REBIF [Suspect]
     Indication: PRODUCT USED FOR UNKNOWN INDICATION
     Dosage: 8.8 MCG, 3 IN 1 WK, SUBCUTANEOUS
     Route: 058
     Dates: start: 20100708, end: 20100724
  2. NUVIGIL [Concomitant]
  3. GABAPENTIN [Concomitant]
  4. PAXIL [Concomitant]

REACTIONS (5)
  - DYSPNOEA [None]
  - NAUSEA [None]
  - PRURITUS [None]
  - RASH GENERALISED [None]
  - RASH MACULO-PAPULAR [None]
